FAERS Safety Report 9367218 (Version 1)
Quarter: 2013Q2

REPORT INFORMATION
  Report Type: Spontaneous
  Country: US (occurrence: US)
  Receive Date: 20130625
  Receipt Date: 20130625
  Transmission Date: 20140414
  Serious: No
  Sender: FDA-Public Use
  Company Number: US-ASTELLAS-2012US005634

PATIENT
  Sex: 0

DRUGS (6)
  1. VESICARE [Suspect]
     Indication: PRODUCT USED FOR UNKNOWN INDICATION
     Dosage: 5 MG, UID/QD
     Route: 048
     Dates: start: 2010
  2. MAXALT                             /01406501/ [Concomitant]
     Indication: MIGRAINE
     Dosage: 10 MG, UID/QD
     Route: 048
     Dates: start: 2004
  3. ESTRIOL [Concomitant]
     Indication: HORMONE THERAPY
     Dosage: 1 MG, UID/QD
     Route: 048
     Dates: start: 2007
  4. PROPRANOLOL [Concomitant]
     Indication: BLOOD PRESSURE
     Dosage: 10 MG, BID
     Route: 048
     Dates: start: 2004
  5. PROPRANOLOL [Concomitant]
     Indication: MIGRAINE
  6. MULTIVITAMIN [Concomitant]
     Indication: SUPPLEMENTATION THERAPY
     Dosage: UNK
     Route: 065

REACTIONS (1)
  - Constipation [Unknown]
